FAERS Safety Report 7935775-8 (Version None)
Quarter: 2011Q4

REPORT INFORMATION
  Report Type: 
  Country: None (occurrence: None)
  Receive Date: 20111123
  Receipt Date: 20111122
  Transmission Date: 20120403
  Serious: Yes (Death, Hospitalization)
  Sender: FDA-Public Use
  Company Number: PHEH2011US008893

PATIENT
  Sex: Female
  Weight: 46 kg

DRUGS (1)
  1. TOBI [Suspect]
     Dosage: 300 MG, BID

REACTIONS (4)
  - SARCOIDOSIS [None]
  - MYCOBACTERIUM AVIUM COMPLEX INFECTION [None]
  - BRONCHIECTASIS [None]
  - LUNG DISORDER [None]
